FAERS Safety Report 7102812-2 (Version None)
Quarter: 2010Q4

REPORT INFORMATION
  Report Type: 
  Country: None (occurrence: None)
  Receive Date: 20101115
  Receipt Date: 20090715
  Transmission Date: 20110411
  Serious: No
  Sender: FDA-Public Use
  Company Number: US-KINGPHARMUSA00001-K200900854

PATIENT

DRUGS (1)
  1. LEVOXYL [Suspect]
     Dosage: 75 MG, QD

REACTIONS (1)
  - OEDEMA PERIPHERAL [None]
